FAERS Safety Report 25288194 (Version 2)
Quarter: 2025Q4

REPORT INFORMATION
  Report Type: Spontaneous
  Country: US (occurrence: US)
  Receive Date: 20250509
  Receipt Date: 20251216
  Transmission Date: 20260117
  Serious: No
  Sender: BRISTOL-MYERS SQUIBB COMPANY
  Company Number: US-BRISTOL-MYERS SQUIBB COMPANY-2025-067660

PATIENT
  Age: 64 Year
  Sex: Male
  Weight: 104.78 kg

DRUGS (17)
  1. REVLIMID [Suspect]
     Active Substance: LENALIDOMIDE
     Indication: Plasma cell myeloma
     Route: 048
  2. Acyclovir Oral [Concomitant]
     Indication: Product used for unknown indication
     Route: 048
  3. ASPIRIN [Concomitant]
     Active Substance: ASPIRIN
     Indication: Product used for unknown indication
     Dosage: ADULT REGIMEN
  4. Allopurinol Oral [Concomitant]
     Indication: Product used for unknown indication
     Route: 048
  5. Atovaquone-Proguanil HCl [Concomitant]
     Indication: Product used for unknown indication
  6. Calcium Citrate + D Oral [Concomitant]
     Indication: Product used for unknown indication
     Route: 048
  7. Carbidopa Oral [Concomitant]
     Indication: Product used for unknown indication
     Route: 048
  8. Coumadin Oral [Concomitant]
     Indication: Product used for unknown indication
     Route: 048
  9. Dapsone Oral [Concomitant]
     Indication: Product used for unknown indication
     Route: 048
  10. GABAPENTIN [Concomitant]
     Active Substance: GABAPENTIN
     Indication: Product used for unknown indication
     Route: 048
  11. Magnesium Oral [Concomitant]
     Indication: Product used for unknown indication
     Route: 048
  12. Metoprolol Tartrate Oral [Concomitant]
     Indication: Product used for unknown indication
     Route: 048
  13. OxyCONTIN Oral [Concomitant]
     Indication: Product used for unknown indication
     Route: 048
  14. Primidone Oral [Concomitant]
     Indication: Product used for unknown indication
     Route: 048
  15. Sulfamethoxazole-Trimethoprim Oral [Concomitant]
     Indication: Product used for unknown indication
     Route: 048
  16. MORPHINE SULFATE [Concomitant]
     Active Substance: MORPHINE SULFATE
     Indication: Product used for unknown indication
  17. AMIODARONE HYDROCHLORIDE [Concomitant]
     Active Substance: AMIODARONE HYDROCHLORIDE
     Indication: Product used for unknown indication

REACTIONS (2)
  - Fatigue [Unknown]
  - Abdominal discomfort [Not Recovered/Not Resolved]
